FAERS Safety Report 19499533 (Version 4)
Quarter: 2022Q4

REPORT INFORMATION
  Report Type: Report from Study
  Country: KR (occurrence: KR)
  Receive Date: 20210707
  Receipt Date: 20221024
  Transmission Date: 20230113
  Serious: Yes (Hospitalization)
  Sender: FDA-Public Use
  Company Number: KR-CELLTRION INC.-2021KR008256

PATIENT

DRUGS (10)
  1. HERZUMA [Suspect]
     Active Substance: TRASTUZUMAB-PKRB
     Indication: Breast cancer
     Dosage: 8 MG/KG (527 MG) Q3WEEKS, CYCLE 1
     Route: 042
     Dates: start: 20210513, end: 20210601
  2. HERZUMA [Suspect]
     Active Substance: TRASTUZUMAB-PKRB
     Dosage: 6 MG/KG (395 MG) Q3WEEKS, CYCLE 1
     Route: 042
     Dates: start: 20210601
  3. ABEMACICLIB [Suspect]
     Active Substance: ABEMACICLIB
     Indication: Breast cancer
     Dosage: UNK
     Route: 048
     Dates: start: 20210513, end: 20210611
  4. KEPPRA [Concomitant]
     Active Substance: LEVETIRACETAM
     Indication: Metastases to central nervous system
     Dosage: 500 MG, BID
     Route: 048
     Dates: start: 20190507, end: 20210723
  5. PREDNISOLONE [Concomitant]
     Active Substance: PREDNISOLONE
     Indication: Paraesthesia
     Dosage: 10 MG, BID
     Route: 048
     Dates: start: 20210601, end: 20210723
  6. ACTIQ [Concomitant]
     Active Substance: FENTANYL CITRATE
     Indication: Cancer pain
     Dosage: 200 MICROGRAM, Q4HR
     Route: 048
     Dates: start: 20210312, end: 20210723
  7. GABAPENTIN [Concomitant]
     Active Substance: GABAPENTIN
     Indication: Neuralgia
     Dosage: 600 MG, TID
     Route: 048
     Dates: start: 20210202, end: 20210723
  8. TRAZODONE HYDROCHLORIDE [Concomitant]
     Active Substance: TRAZODONE HYDROCHLORIDE
     Indication: Depression
     Dosage: 25 MG, QD
     Route: 048
     Dates: start: 20210421, end: 20210723
  9. NALOXONE HYDROCHLORIDE\OXYCODONE HYDROCHLORIDE [Concomitant]
     Active Substance: NALOXONE HYDROCHLORIDE\OXYCODONE HYDROCHLORIDE
     Indication: Cancer pain
     Dosage: 1 DF, TID
     Route: 048
     Dates: start: 20210129, end: 20210723
  10. ENTELON [Concomitant]
     Indication: Lymphoedema
     Dosage: 150 MG, BID
     Route: 048
     Dates: start: 20190508, end: 20210723

REACTIONS (2)
  - Herpes zoster [Recovered/Resolved]
  - Disease progression [Recovered/Resolved]

NARRATIVE: CASE EVENT DATE: 20210609
